FAERS Safety Report 26046318 (Version 1)
Quarter: 2025Q4

REPORT INFORMATION
  Report Type: Spontaneous
  Country: US (occurrence: US)
  Receive Date: 20251114
  Receipt Date: 20251114
  Transmission Date: 20260117
  Serious: No
  Sender: ABBVIE
  Company Number: US-ABBVIE-6546646

PATIENT
  Age: 63 Year
  Sex: Male

DRUGS (2)
  1. FOSCARBIDOPA\FOSLEVODOPA [Suspect]
     Active Substance: FOSCARBIDOPA\FOSLEVODOPA
     Indication: Product used for unknown indication
     Dosage: DAYTIME DOSE 0.57 ML/H
     Route: 058
  2. FOSCARBIDOPA\FOSLEVODOPA [Suspect]
     Active Substance: FOSCARBIDOPA\FOSLEVODOPA
     Dosage: DAYTIME DOSE 0.52 ML/H
     Route: 058

REACTIONS (4)
  - Infusion site erythema [Unknown]
  - Infusion site warmth [Unknown]
  - Infusion site pruritus [Unknown]
  - Dyskinesia [Recovered/Resolved]
